FAERS Safety Report 8232094-X (Version None)
Quarter: 2012Q1

REPORT INFORMATION
  Report Type: 
  Country: None (occurrence: None)
  Receive Date: 20120323
  Receipt Date: 20120321
  Transmission Date: 20120608
  Serious: Yes (Life-Threatening, Hospitalization)
  Sender: FDA-Public Use
  Company Number: US-BRISTOL-MYERS SQUIBB COMPANY-16425803

PATIENT
  Age: 70 Year
  Sex: Female

DRUGS (2)
  1. WELLBUTRIN XL [Suspect]
  2. ABILIFY [Suspect]
     Indication: BIPOLAR DISORDER
     Route: 048
     Dates: start: 20120121, end: 20120228

REACTIONS (4)
  - DEHYDRATION [None]
  - ACUTE GENERALISED EXANTHEMATOUS PUSTULOSIS [None]
  - DEPRESSED LEVEL OF CONSCIOUSNESS [None]
  - RENAL FAILURE [None]
